FAERS Safety Report 14172716 (Version 1)
Quarter: 2017Q4

REPORT INFORMATION
  Report Type: Spontaneous
  Country: US (occurrence: US)
  Receive Date: 20171108
  Receipt Date: 20171108
  Transmission Date: 20180321
  Serious: Yes (Hospitalization)
  Sender: FDA-Public Use
  Company Number: None

PATIENT
  Age: 75 Year
  Sex: Female
  Weight: 63.3 kg

DRUGS (20)
  1. CHLORHEXIDINE [Concomitant]
     Active Substance: CHLORHEXIDINE
  2. FENTANYL. [Concomitant]
     Active Substance: FENTANYL
  3. DAKINS FULL [Concomitant]
     Active Substance: SODIUM HYPOCHLORITE
  4. INSULIN, REGULAR [Concomitant]
     Active Substance: INSULIN NOS
  5. MEROPENEM. [Concomitant]
     Active Substance: MEROPENEM
  6. MULTIVITAMINS [Concomitant]
     Active Substance: VITAMINS
  7. ASPIRIN, BABY [Concomitant]
  8. METRONIDAZOLE. [Concomitant]
     Active Substance: METRONIDAZOLE
  9. ALBUTEROL. [Concomitant]
     Active Substance: ALBUTEROL
  10. FLUCONAZOLE. [Concomitant]
     Active Substance: FLUCONAZOLE
  11. INSULIN GLARGINE [Concomitant]
     Active Substance: INSULIN GLARGINE
  12. PIPERACILIN/TAZOBACTAM [Concomitant]
     Active Substance: PIPERACILLIN SODIUM\TAZOBACTAM SODIUM
  13. ALPRAZOLAM. [Suspect]
     Active Substance: ALPRAZOLAM
     Indication: COGNITIVE DISORDER
     Dosage: ONCE; VIA OG TUBE?
     Dates: start: 20170821, end: 20170821
  14. ASCORBIC ACID. [Concomitant]
     Active Substance: ASCORBIC ACID
  15. LANSOPRAZOLE. [Concomitant]
     Active Substance: LANSOPRAZOLE
  16. VANCOMYCIN [Concomitant]
     Active Substance: VANCOMYCIN
  17. IPRATROPOIUM [Concomitant]
  18. COLISTIMETHATE SODIUM. [Concomitant]
     Active Substance: COLISTIMETHATE SODIUM
  19. HYDROCORTISONE. [Concomitant]
     Active Substance: HYDROCORTISONE
  20. NYSTATIN. [Concomitant]
     Active Substance: NYSTATIN

REACTIONS (1)
  - Hypotension [None]

NARRATIVE: CASE EVENT DATE: 20170821
